FAERS Safety Report 18104421 (Version 1)
Quarter: 2020Q3

REPORT INFORMATION
  Report Type: Spontaneous
  Country: HR (occurrence: HR)
  Receive Date: 20200803
  Receipt Date: 20200803
  Transmission Date: 20201103
  Serious: Yes (Other)
  Sender: FDA-Public Use
  Company Number: HR-TEVA-2020-HR-1808201

PATIENT
  Age: 84 Year
  Sex: Female

DRUGS (2)
  1. TINIDIL [Suspect]
     Active Substance: ISOSORBIDE DINITRATE
     Dosage: 25 MG,
     Route: 048
     Dates: start: 20200401, end: 20200401
  2. TINIDIL [Suspect]
     Active Substance: ISOSORBIDE DINITRATE
     Dosage: 25 MG
     Route: 060
     Dates: start: 20200401, end: 20200401

REACTIONS (3)
  - Intentional overdose [Unknown]
  - Suicide attempt [Unknown]
  - Hypotension [Unknown]

NARRATIVE: CASE EVENT DATE: 20200401
